FAERS Safety Report 6676123-3 (Version None)
Quarter: 2010Q2

REPORT INFORMATION
  Report Type: 
  Country: None (occurrence: None)
  Receive Date: 20100412
  Receipt Date: 20100331
  Transmission Date: 20101027
  Serious: Yes (Other)
  Sender: FDA-Public Use
  Company Number: IN-PFIZER INC-2010036090

PATIENT
  Age: 76 Year
  Sex: Male

DRUGS (3)
  1. CYKLOKAPRON [Suspect]
     Indication: SURGERY
     Dosage: 10 MG/KG, UNK
     Route: 042
  2. CYKLOKAPRON [Suspect]
     Dosage: 1 MG/KG/HR
     Route: 042
  3. IMIPENEM AND CILASTATIN SODIUM [Suspect]
     Indication: RESPIRATORY TRACT INFECTION
     Dosage: 1 G, 2X/DAY
     Route: 042

REACTIONS (2)
  - CONVULSION [None]
  - GRAND MAL CONVULSION [None]
